FAERS Safety Report 9809199 (Version 1)
Quarter: 2014Q1

REPORT INFORMATION
  Report Type: Spontaneous
  Country: US (occurrence: US)
  Receive Date: 20140110
  Receipt Date: 20140110
  Transmission Date: 20141002
  Serious: No
  Sender: FDA-Public Use
  Company Number: US-MALLINCKRODT-T201301877

PATIENT
  Age: 74 Year
  Sex: Female

DRUGS (1)
  1. OPTIRAY [Suspect]
     Indication: COMPUTERISED TOMOGRAM
     Dosage: 150 ML, SINGLE, RATE 2.0 ML/SEC
     Route: 042
     Dates: start: 20130220, end: 20130220

REACTIONS (1)
  - Rash [Recovered/Resolved]
